FAERS Safety Report 12464208 (Version 1)
Quarter: 2016Q2

REPORT INFORMATION
  Report Type: Spontaneous
  Country: US (occurrence: US)
  Receive Date: 20160614
  Receipt Date: 20160614
  Transmission Date: 20160815
  Serious: Yes (Hospitalization, Other)
  Sender: FDA-Public Use
  Company Number: US-GLAXOSMITHKLINE-US2016083182

PATIENT
  Sex: Female

DRUGS (1)
  1. ADVAIR DISKUS [Suspect]
     Active Substance: FLUTICASONE PROPIONATE\SALMETEROL XINAFOATE
     Indication: PRODUCT USED FOR UNKNOWN INDICATION
     Dosage: 1 PUFF(S), UNK
     Dates: end: 201601

REACTIONS (6)
  - Osteoporosis [Unknown]
  - Multiple fractures [Unknown]
  - Tooth disorder [Unknown]
  - Osteomyelitis [Unknown]
  - Lung infection [Unknown]
  - Staphylococcal infection [Unknown]
